FAERS Safety Report 5419746-1 (Version None)
Quarter: 2007Q3

REPORT INFORMATION
  Report Type: 
  Country: None (occurrence: None)
  Receive Date: 20070820
  Receipt Date: 20070814
  Transmission Date: 20080115
  Serious: Yes (Hospitalization)
  Sender: FDA-Public Use
  Company Number: US-BRISTOL-MYERS SQUIBB COMPANY-13877709

PATIENT
  Age: 89 Year
  Sex: Male
  Weight: 61 kg

DRUGS (5)
  1. ORENCIA [Suspect]
     Indication: RHEUMATOID ARTHRITIS
     Route: 042
     Dates: start: 20070719, end: 20070719
  2. ATENOLOL [Concomitant]
  3. MECLIZINE [Concomitant]
  4. OXYGEN [Concomitant]
  5. EYE DROPS [Concomitant]

REACTIONS (8)
  - ASTHENIA [None]
  - COUGH [None]
  - DEHYDRATION [None]
  - DIZZINESS [None]
  - GAIT DISTURBANCE [None]
  - HYPOAESTHESIA [None]
  - ORAL INTAKE REDUCED [None]
  - URINARY RETENTION [None]
